FAERS Safety Report 7388127-6 (Version None)
Quarter: 2011Q1

REPORT INFORMATION
  Report Type: 
  Country: None (occurrence: None)
  Receive Date: 20110324
  Receipt Date: 20110315
  Transmission Date: 20110831
  Serious: Yes (Hospitalization)
  Sender: FDA-Public Use
  Company Number: 2011MA002451

PATIENT
  Age: 4 Month
  Sex: Male

DRUGS (3)
  1. BUPIVACAINE HCL [Concomitant]
  2. CLONIDINE HYDROCHLORIDE [Suspect]
     Indication: ANAESTHESIA
     Dosage: 5 UG;INTH
     Route: 037
  3. PROPOFOL [Concomitant]

REACTIONS (5)
  - NEUROTOXICITY [None]
  - HYPOTONIA [None]
  - LETHARGY [None]
  - SEDATION [None]
  - RESPIRATORY DEPRESSION [None]
